FAERS Safety Report 17820684 (Version 1)
Quarter: 2020Q2

REPORT INFORMATION
  Report Type: Report from Study
  Country: CA (occurrence: CA)
  Receive Date: 20200525
  Receipt Date: 20200525
  Transmission Date: 20200714
  Serious: Yes (Hospitalization, Other)
  Sender: FDA-Public Use
  Company Number: CA-PFIZER INC-2020202527

PATIENT
  Age: 53 Year
  Sex: Male

DRUGS (15)
  1. METFORMIN FC [Concomitant]
     Dosage: 850 MG, 2 EVERY 1 DAYS
     Route: 065
  2. COVERSYL [PERINDOPRIL ARGININE] [Concomitant]
     Active Substance: PERINDOPRIL ARGININE
     Dosage: 4 MG, 1 EVERY 1 DAYS
     Route: 048
  3. FUROSEMIDE. [Concomitant]
     Active Substance: FUROSEMIDE
     Route: 065
  4. SOMAVERT [Concomitant]
     Active Substance: PEGVISOMANT
     Route: 065
  5. SANDOSTATIN LAR DEPOT [Suspect]
     Active Substance: OCTREOTIDE ACETATE
     Indication: ACROMEGALY
     Dosage: 30 MG
     Route: 030
  6. BOSENTAN. [Concomitant]
     Active Substance: BOSENTAN
     Route: 065
  7. METFORMIN HYDROCHLORIDE. [Suspect]
     Active Substance: METFORMIN HYDROCHLORIDE
     Dosage: 850 MG, 2 EVERY 1 DAYS
     Route: 048
  8. SANDOSTATIN LAR DEPOT [Suspect]
     Active Substance: OCTREOTIDE ACETATE
     Dosage: 30 MG, 1 EVERY 1 MONTHS
     Route: 030
  9. SANDOSTATIN LAR DEPOT [Suspect]
     Active Substance: OCTREOTIDE ACETATE
     Indication: ACROMEGALY
     Dosage: 20 MG, 1 EVERY 1 MONTHS
     Route: 030
  10. SANDOSTATIN [Suspect]
     Active Substance: OCTREOTIDE ACETATE
     Indication: ACROMEGALY
     Dosage: UNK UNK, 3X/DAY
     Route: 058
  11. COVERSYL [PERINDOPRIL ARGININE] [Concomitant]
     Active Substance: PERINDOPRIL ARGININE
     Dosage: 6 MG, 1 EVERY 1 DAYS
     Route: 048
  12. BISOPROLOL FUMARATE. [Concomitant]
     Active Substance: BISOPROLOL FUMARATE
     Dosage: 5 MG, 1 EVERY 1 DAYS
     Route: 065
  13. ATORVASTATIN CALCIUM. [Suspect]
     Active Substance: ATORVASTATIN CALCIUM
     Dosage: 40 MG
     Route: 065
  14. DOSTINEX [Concomitant]
     Active Substance: CABERGOLINE
     Dosage: 0.5 MG
     Route: 048
  15. TAMSULOSIN HYDROCHLORIDE. [Concomitant]
     Active Substance: TAMSULOSIN HYDROCHLORIDE
     Dosage: 0.4 MG, 1 EVERY 1 DAYS
     Route: 065

REACTIONS (20)
  - Diarrhoea [Recovered/Resolved]
  - Fatigue [Recovered/Resolved]
  - Gastroenteritis viral [Recovered/Resolved]
  - Headache [Recovered/Resolved]
  - Erythema [Recovered/Resolved]
  - Faeces soft [Recovered/Resolved]
  - Injection site erosion [Recovered/Resolved]
  - Lactose intolerance [Recovered/Resolved]
  - Blood pressure increased [Recovered/Resolved]
  - Dyspnoea exertional [Recovered/Resolved]
  - Therapeutic response decreased [Recovered/Resolved]
  - Blood cholesterol abnormal [Recovered/Resolved]
  - Heart rate decreased [Recovered/Resolved]
  - Abdominal distension [Recovered/Resolved]
  - Blister [Recovered/Resolved]
  - Insulin-like growth factor increased [Recovered/Resolved]
  - Renal haematoma [Recovered/Resolved]
  - Flatulence [Recovered/Resolved]
  - Needle issue [Recovered/Resolved]
  - Blood pressure fluctuation [Recovered/Resolved]
